FAERS Safety Report 8516665-9 (Version None)
Quarter: 2012Q3

REPORT INFORMATION
  Report Type: 
  Country: None (occurrence: None)
  Receive Date: 20120718
  Receipt Date: 20120710
  Transmission Date: 20120928
  Serious: Yes (Hospitalization, Other)
  Sender: FDA-Public Use
  Company Number: AU-UCBSA-057780

PATIENT
  Age: 59 Year
  Sex: Female

DRUGS (13)
  1. PREDNISOLONE [Concomitant]
     Dosage: QUANTITY:60
  2. CIPROFLOXACIN [Concomitant]
     Indication: PYREXIA
     Dosage: QUANTITY :14, 1 HOUR BEFORE OR TWO HOURS AFTER FOOD
     Route: 048
  3. PERINDOPRIL ERBUMINE [Concomitant]
     Dosage: QUANTITY:30
     Route: 048
  4. FILGRASTIM [Suspect]
     Dosage: DAILY
     Dates: start: 20120517, end: 20120520
  5. BACTROBAN [Concomitant]
     Dosage: 2% (20 MG/G) ,15 G
     Route: 061
  6. FOLIC ACID [Concomitant]
     Dosage: QUANTITY :200
     Route: 048
  7. PANTOPRAZOLE [Concomitant]
     Dosage: QUANTITY:30
     Route: 048
  8. CIMZIA [Suspect]
     Indication: RHEUMATOID ARTHRITIS
     Route: 058
     Dates: start: 20120101, end: 20120514
  9. CHOLECALCIFEROL [Concomitant]
     Dosage: QUANTITY :60
     Route: 048
  10. PREDNISOLONE [Concomitant]
     Indication: RASH
     Dosage: DOSE INCREASED, TO BE WEANED
     Dates: start: 20120501
  11. FILGRASTIM [Suspect]
     Indication: FEBRILE NEUTROPENIA
     Dosage: EVERY OTHER DAY
     Dates: start: 20120521, end: 20120601
  12. CEFEPIME HYDROCHLORIDE [Concomitant]
     Indication: FEBRILE NEUTROPENIA
     Route: 042
     Dates: start: 20120517, end: 20120520
  13. ARTIFICIAL TEARS [Concomitant]
     Dosage: 1 G/G EYE OINTMENT 3.5 G

REACTIONS (4)
  - DRUG ERUPTION [None]
  - FEBRILE NEUTROPENIA [None]
  - RHEUMATOID ARTHRITIS [None]
  - WHITE BLOOD CELL COUNT INCREASED [None]
